FAERS Safety Report 12766114 (Version 1)
Quarter: 2016Q3

REPORT INFORMATION
  Report Type: Spontaneous
  Country: US (occurrence: US)
  Receive Date: 20160920
  Receipt Date: 20160920
  Transmission Date: 20161109
  Serious: Yes (Other)
  Sender: FDA-Public Use
  Company Number: None

PATIENT
  Age: 88 Year
  Sex: Female
  Weight: 55 kg

DRUGS (1)
  1. PIMAVANSERIN [Suspect]
     Active Substance: PIMAVANSERIN
     Indication: PSYCHOTIC DISORDER
     Dates: start: 20160701, end: 20160809

REACTIONS (4)
  - Paranoia [None]
  - Agitation [None]
  - Delusion [None]
  - Psychotic disorder [None]
